FAERS Safety Report 7070080-6 (Version None)
Quarter: 2010Q4

REPORT INFORMATION
  Report Type: 
  Country: None (occurrence: None)
  Receive Date: 20101028
  Receipt Date: 20100915
  Transmission Date: 20110411
  Serious: No
  Sender: FDA-Public Use
  Company Number: US-WYE-H16820410

PATIENT
  Age: 58 Year
  Sex: Female
  Weight: 95.79 kg

DRUGS (5)
  1. ADVIL [Suspect]
     Indication: PAIN
     Dosage: 2 LIQUI-GELS AS NEEDED
     Route: 048
  2. LEVOTHROID [Concomitant]
  3. LISINOPRIL [Concomitant]
  4. ATENOLOL [Concomitant]
  5. HYGROTON [Concomitant]

REACTIONS (2)
  - CAPSULE ISSUE [None]
  - PARAESTHESIA ORAL [None]
